FAERS Safety Report 13144128 (Version 1)
Quarter: 2017Q1

REPORT INFORMATION
  Report Type: Spontaneous
  Country: US (occurrence: US)
  Receive Date: 20170124
  Receipt Date: 20170124
  Transmission Date: 20170428
  Serious: No
  Sender: FDA-Public Use
  Company Number: US-BAUSCH-BL-2016-006376

PATIENT
  Sex: Female

DRUGS (1)
  1. NIFEDIAC CC [Suspect]
     Active Substance: NIFEDIPINE
     Indication: PRODUCT USED FOR UNKNOWN INDICATION
     Route: 065
     Dates: end: 20160304

REACTIONS (2)
  - Drug dose omission [Unknown]
  - Product quality issue [Unknown]
